FAERS Safety Report 15239864 (Version 1)
Quarter: 2018Q3

REPORT INFORMATION
  Report Type: Spontaneous
  Country: US (occurrence: US)
  Receive Date: 20180710
  Receipt Date: 20180710
  Transmission Date: 20181010
  Serious: No
  Sender: FDA-Public Use
  Company Number: None

PATIENT
  Age: 35 Year
  Sex: Female

DRUGS (1)
  1. MAKENA [Suspect]
     Active Substance: HYDROXYPROGESTERONE CAPROATE
     Route: 058
     Dates: start: 20180618, end: 20180710

REACTIONS (3)
  - Injection site pruritus [None]
  - Injection site pain [None]
  - Injection site urticaria [None]

NARRATIVE: CASE EVENT DATE: 20180702
